FAERS Safety Report 24286464 (Version 1)
Quarter: 2024Q3

REPORT INFORMATION
  Report Type: Spontaneous
  Country: US (occurrence: None)
  Receive Date: 20240902
  Receipt Date: 20240902
  Transmission Date: 20241017
  Serious: No
  Sender: Public
  Company Number: None

PATIENT
  Age: 52 Year
  Sex: Female

DRUGS (4)
  1. VONVENDI [Suspect]
     Active Substance: VON WILLEBRAND FACTOR (RECOMBINANT)
     Indication: Von Willebrand^s disease
     Dosage: INFUSE 2.175 UNITS (1958-2392) SLOW IV PUSH ONCE AS NEEDED FOR SEVERE BLEEDING
     Route: 042
     Dates: start: 202405
  2. VONVENDI [Suspect]
     Active Substance: VON WILLEBRAND FACTOR (RECOMBINANT)
     Indication: Von Willebrand^s disease
     Dosage: INFUSE 2.175 UNITS (1958-2392) SLOW IV PUSH ONCE AS NEEDED FOR SEVERE BLEEDING
     Route: 042
     Dates: start: 202405
  3. KOVALTRY [Suspect]
     Active Substance: ANTIHEMOPHILIC FACTOR, HUMAN RECOMBINANT
     Dosage: FREQUENCY : UNKNOWN;?
     Route: 042
  4. NORMAL SALINE FLUSH [Concomitant]

REACTIONS (4)
  - Vaginal haemorrhage [None]
  - Menstruation irregular [None]
  - Abdominal distension [None]
  - Dysmenorrhoea [None]

NARRATIVE: CASE EVENT DATE: 20240604
